FAERS Safety Report 10032398 (Version 1)
Quarter: 2014Q1

REPORT INFORMATION
  Report Type: Spontaneous
  Country: IR (occurrence: IR)
  Receive Date: 20140324
  Receipt Date: 20140324
  Transmission Date: 20141002
  Serious: Yes (Other)
  Sender: FDA-Public Use
  Company Number: IR-ROXANE LABORATORIES, INC.-2014-RO-00452RO

PATIENT
  Age: 57 Year
  Sex: Male

DRUGS (6)
  1. AMLODIPINE [Suspect]
     Indication: HYPERTENSIVE CRISIS
     Dosage: 5 MG
     Route: 065
  2. CAPTOPRIL [Suspect]
     Indication: HYPERTENSIVE CRISIS
     Dosage: 125 MG
     Route: 065
  3. PROPRANOLOL [Concomitant]
     Indication: HYPERTENSION
     Dosage: 30 MG
     Route: 065
  4. METHADONE [Concomitant]
     Indication: DRUG DEPENDENCE
     Dosage: 20 MG
     Route: 065
  5. PEARL OF TNG [Concomitant]
     Indication: HYPERTENSION
     Route: 060
  6. ASA [Concomitant]
     Indication: HYPERTENSIVE CRISIS
     Dosage: 80 MG
     Route: 065

REACTIONS (2)
  - Headache [Unknown]
  - Drug intolerance [Unknown]
